FAERS Safety Report 18033342 (Version 4)
Quarter: 2021Q4

REPORT INFORMATION
  Report Type: Spontaneous
  Country: US (occurrence: US)
  Receive Date: 20200716
  Receipt Date: 20211013
  Transmission Date: 20220303
  Serious: Yes (Other)
  Sender: FDA-Public Use
  Company Number: US-PFIZER INC-2020134509

PATIENT
  Age: 63 Year
  Sex: Male

DRUGS (1)
  1. LYRICA [Suspect]
     Active Substance: PREGABALIN
     Indication: Neuralgia
     Dosage: UNK

REACTIONS (4)
  - Suicidal ideation [Unknown]
  - Drug dependence [Unknown]
  - Malaise [Unknown]
  - Withdrawal syndrome [Unknown]
